FAERS Safety Report 14248958 (Version 3)
Quarter: 2019Q1

REPORT INFORMATION
  Report Type: Report from Study
  Country: CL (occurrence: CL)
  Receive Date: 20171204
  Receipt Date: 20190214
  Transmission Date: 20190417
  Serious: Yes (Death)
  Sender: FDA-Public Use
  Company Number: CL-ALLERGAN-1768699US

PATIENT
  Age: 26 Year
  Sex: Male

DRUGS (4)
  1. CEFTAZIDIME;AVIBACTAM UNK [Suspect]
     Active Substance: AVIBACTAM SODIUM\CEFTAZIDIME
     Indication: CNS VENTRICULITIS
  2. RANITIDINE BISMUTREX [Concomitant]
     Indication: PRODUCT USED FOR UNKNOWN INDICATION
  3. FENITOINA [Concomitant]
     Active Substance: PHENYTOIN
     Indication: PRODUCT USED FOR UNKNOWN INDICATION
  4. CEFTAZIDIME;AVIBACTAM UNK [Suspect]
     Active Substance: AVIBACTAM SODIUM\CEFTAZIDIME
     Indication: BRAIN ABSCESS
     Dosage: 2.5 G, TID
     Route: 042
     Dates: start: 20171028, end: 20171124

REACTIONS (3)
  - Brain oedema [Fatal]
  - Intracranial pressure increased [Fatal]
  - Ependymoma [Fatal]

NARRATIVE: CASE EVENT DATE: 20171122
